FAERS Safety Report 22344590 (Version 2)
Quarter: 2023Q2

REPORT INFORMATION
  Report Type: Spontaneous
  Country: US (occurrence: US)
  Receive Date: 20230519
  Receipt Date: 20230529
  Transmission Date: 20230722
  Serious: Yes (Other)
  Sender: FDA-Public Use
  Company Number: US-BRISTOL-MYERS SQUIBB COMPANY-2023-067546

PATIENT
  Age: 48 Year
  Sex: Male

DRUGS (2)
  1. REVLIMID [Suspect]
     Active Substance: LENALIDOMIDE
     Indication: Plasma cell myeloma
     Dosage: TAKE 1 CAPSULE (25 MG TOTAL) BY MOUTH DAILY ON DAYS 1-21 OF A 28 DAY CYCLE
     Route: 048
     Dates: end: 20230510
  2. REVLIMID [Suspect]
     Active Substance: LENALIDOMIDE
     Dosage: RESTARTED

REACTIONS (2)
  - Rash [Recovered/Resolved]
  - Dyspnoea [Not Recovered/Not Resolved]
